FAERS Safety Report 14539526 (Version 1)
Quarter: 2018Q1

REPORT INFORMATION
  Report Type: Spontaneous
  Country: US (occurrence: US)
  Receive Date: 20180216
  Receipt Date: 20180216
  Transmission Date: 20180509
  Serious: Yes (Death)
  Sender: FDA-Public Use
  Company Number: PHEH2018US006050

PATIENT
  Age: 41 Year
  Sex: Female

DRUGS (1)
  1. TYKERB [Suspect]
     Active Substance: LAPATINIB DITOSYLATE
     Indication: THROMBOCYTOPENIA
     Dosage: 1250 MG, QD
     Route: 048
     Dates: start: 20170803, end: 20180102

REACTIONS (1)
  - Death [Fatal]

NARRATIVE: CASE EVENT DATE: 20180130
